FAERS Safety Report 16199928 (Version 1)
Quarter: 2019Q2

REPORT INFORMATION
  Report Type: Spontaneous
  Country: US (occurrence: US)
  Receive Date: 20190415
  Receipt Date: 20190415
  Transmission Date: 20190711
  Serious: No
  Sender: FDA-Public Use
  Company Number: PHHY2019US082540

PATIENT
  Sex: Female

DRUGS (1)
  1. GENTEAL NIGHT-TIME PM [Suspect]
     Active Substance: MINERAL OIL\PETROLATUM
     Indication: PRODUCT USED FOR UNKNOWN INDICATION
     Dosage: UNK
     Route: 065
     Dates: start: 20190328, end: 20190406

REACTIONS (6)
  - Hypersensitivity [Recovered/Resolved]
  - Pruritus [Recovered/Resolved]
  - Pain [Recovered/Resolved]
  - Rash [Recovered/Resolved]
  - Product quality issue [Unknown]
  - Swelling [Recovered/Resolved]

NARRATIVE: CASE EVENT DATE: 20190331
